FAERS Safety Report 12985487 (Version 1)
Quarter: 2016Q4

REPORT INFORMATION
  Report Type: Spontaneous
  Country: TW (occurrence: TW)
  Receive Date: 20161130
  Receipt Date: 20161130
  Transmission Date: 20170207
  Serious: Yes (Life-Threatening, Hospitalization, Other)
  Sender: FDA-Public Use
  Company Number: TW-SUN PHARMACEUTICAL INDUSTRIES LTD-2016RR-128460

PATIENT
  Age: 59 Year
  Sex: Male

DRUGS (4)
  1. INSULIN [Concomitant]
     Active Substance: INSULIN NOS
     Indication: HYPERGLYCAEMIA
     Route: 058
  2. ACETYLSALICYLIC ACID [Suspect]
     Active Substance: ASPIRIN
     Indication: BRAIN STEM INFARCTION
     Dosage: 100 MG
     Route: 065
  3. DIPYRIDAMOLE. [Suspect]
     Active Substance: DIPYRIDAMOLE
     Indication: BRAIN STEM INFARCTION
     Dosage: 75 MG, BID
     Route: 065
  4. ACETYLSALICYLIC ACID [Suspect]
     Active Substance: ASPIRIN
     Dosage: 300 MG
     Route: 065

REACTIONS (3)
  - Coma [Not Recovered/Not Resolved]
  - Brain stem haemorrhage [Recovered/Resolved]
  - Haemorrhagic transformation stroke [Recovered/Resolved]
